FAERS Safety Report 8582726-1 (Version None)
Quarter: 2012Q3

REPORT INFORMATION
  Report Type: 
  Country: None (occurrence: None)
  Receive Date: 20120809
  Receipt Date: 20120730
  Transmission Date: 20120928
  Serious: Yes (Other)
  Sender: FDA-Public Use
  Company Number: PE-BRISTOL-MYERS SQUIBB COMPANY-16819898

PATIENT
  Age: 72 Year
  Sex: Female

DRUGS (5)
  1. ABATACEPT [Suspect]
     Indication: RHEUMATOID ARTHRITIS
     Dosage: LAST DOSE ADMINISTERED ON 30JUL2012
     Route: 058
     Dates: start: 20081222, end: 20120730
  2. IBUPROFEN [Concomitant]
     Dates: start: 20090903
  3. FOLIC ACID [Concomitant]
     Dates: start: 20070414
  4. METHOTREXATE [Suspect]
     Dates: start: 20090615
  5. DICLOFENAC [Concomitant]
     Dates: start: 20050716

REACTIONS (1)
  - PANCREATIC CYST [None]
